FAERS Safety Report 5874897-2 (Version None)
Quarter: 2008Q3

REPORT INFORMATION
  Report Type: 
  Country: None (occurrence: None)
  Receive Date: 20080909
  Receipt Date: 20080903
  Transmission Date: 20090109
  Serious: Yes (Other)
  Sender: FDA-Public Use
  Company Number: US-ASTRAZENECA-2008UW18114

PATIENT
  Age: 80 Year
  Sex: Female
  Weight: 68.9 kg

DRUGS (12)
  1. ARIMIDEX [Suspect]
     Indication: BREAST CANCER
     Route: 048
     Dates: start: 20070101
  2. METOPROLOL TARTRATE [Concomitant]
  3. ALEVE [Concomitant]
  4. LIPITOR [Concomitant]
  5. ASPIRIN [Concomitant]
  6. CLARITIN [Concomitant]
  7. ZANTAC [Concomitant]
  8. COZAAR [Concomitant]
  9. CALTRATE [Concomitant]
  10. MULTI-VITAMINS [Concomitant]
  11. GLUCOSAMINE [Concomitant]
  12. COLACE [Concomitant]

REACTIONS (2)
  - CARPAL TUNNEL SYNDROME [None]
  - DUPUYTREN'S CONTRACTURE [None]
